FAERS Safety Report 19121163 (Version 1)
Quarter: 2021Q2

REPORT INFORMATION
  Report Type: Spontaneous
  Country: US (occurrence: US)
  Receive Date: 20210412
  Receipt Date: 20210412
  Transmission Date: 20210717
  Serious: No
  Sender: FDA-Public Use
  Company Number: None

PATIENT
  Sex: Female

DRUGS (1)
  1. VERZENIO [Suspect]
     Active Substance: ABEMACICLIB
     Indication: BREAST CANCER
     Route: 048
     Dates: start: 202101, end: 202103

REACTIONS (5)
  - Drug ineffective [None]
  - Decreased appetite [None]
  - Weight decreased [None]
  - Intentional dose omission [None]
  - Diarrhoea [None]
